FAERS Safety Report 7405892-X (Version None)
Quarter: 2011Q2

REPORT INFORMATION
  Report Type: 
  Country: None (occurrence: None)
  Receive Date: 20110411
  Receipt Date: 20110328
  Transmission Date: 20111010
  Serious: Yes (Other)
  Sender: FDA-Public Use
  Company Number: US-JNJFOC-20110311462

PATIENT
  Sex: Female
  Weight: 91.63 kg

DRUGS (14)
  1. REMICADE [Suspect]
     Indication: RHEUMATOID ARTHRITIS
     Dosage: INFUSION #3
     Route: 042
  2. REMICADE [Suspect]
     Indication: PSORIATIC ARTHROPATHY
     Dosage: INFUSION #2
     Route: 042
  3. LEXAPRO [Concomitant]
     Route: 048
  4. SOLU-MEDROL [Concomitant]
     Indication: PREMEDICATION
  5. METFORMIN HCL [Concomitant]
     Indication: DIABETES MELLITUS
     Route: 048
  6. BENADRYL [Concomitant]
     Indication: PREMEDICATION
  7. REMICADE [Suspect]
     Dosage: INFUSION #3
     Route: 042
  8. LISINOPRIL [Concomitant]
     Indication: HYPERTENSION
     Route: 048
  9. REMICADE [Suspect]
     Dosage: INFUSION #2
     Route: 042
  10. SYNTHROID [Concomitant]
     Indication: HYPOTHYROIDISM
     Route: 048
  11. REMICADE [Suspect]
     Dosage: INFUSION #1
     Route: 042
  12. METHOTREXATE [Concomitant]
     Indication: RHEUMATOID ARTHRITIS
     Dosage: DOSE 10 MG EVERY 12 HOURS FOR 3 DOSES ONCE A WEEK
  13. FOLIC ACID [Concomitant]
     Indication: FOLATE DEFICIENCY
     Route: 048
  14. REMICADE [Suspect]
     Dosage: INFUSION #1
     Route: 042

REACTIONS (7)
  - TREMOR [None]
  - BLOOD GLUCOSE INCREASED [None]
  - NAUSEA [None]
  - INFUSION RELATED REACTION [None]
  - DIZZINESS [None]
  - LETHARGY [None]
  - HEADACHE [None]
